FAERS Safety Report 6618951-6 (Version None)
Quarter: 2010Q1

REPORT INFORMATION
  Report Type: 
  Country: None (occurrence: None)
  Receive Date: 20100308
  Receipt Date: 20100301
  Transmission Date: 20100710
  Serious: Yes (Hospitalization, Other)
  Sender: FDA-Public Use
  Company Number: US-SANOFI-AVENTIS-200912191US

PATIENT
  Age: 63 Year
  Sex: Male

DRUGS (5)
  1. INSULIN GLARGINE [Suspect]
     Dosage: DOSE AS USED: 12-14 UNITS   DOSE:30 UNIT(S)
     Route: 058
  2. INSULIN GLARGINE [Suspect]
     Dosage: DOSE AS USED: 12-14 UNITS   DOSE:30 UNIT(S)
     Route: 058
  3. OPTICLICK [Suspect]
  4. PLAVIX [Concomitant]
     Dosage: DOSE AS USED: UNK
  5. METOPROLOL TARTRATE [Concomitant]
     Dosage: DOSE AS USED: UNK

REACTIONS (8)
  - ARTERIAL REPAIR [None]
  - CATARACT OPERATION [None]
  - CORONARY ARTERY BYPASS [None]
  - HYPERGLYCAEMIA [None]
  - NEUROPATHY PERIPHERAL [None]
  - PNEUMONIA [None]
  - STENT PLACEMENT [None]
  - VISION BLURRED [None]
